FAERS Safety Report 8804538 (Version 1)
Quarter: 2012Q4

REPORT INFORMATION
  Report Type: 
  Country: CH (occurrence: CH)
  Receive Date: 20120924
  Receipt Date: 20120924
  Transmission Date: 20130627
  Serious: Yes (Other)
  Sender: FDA-Public Use
  Company Number: CH-TEVA-358812ISR

PATIENT
  Age: 20 Year
  Sex: Male

DRUGS (3)
  1. ISOTRETINOIN [Suspect]
     Indication: ACNE
     Dosage: 30 Milligram Daily;
     Route: 065
  2. ASPIRIN [Concomitant]
     Route: 065
  3. PRETUVAL [Concomitant]
     Route: 065

REACTIONS (1)
  - Henoch-Schonlein purpura [Not Recovered/Not Resolved]
